FAERS Safety Report 15223645 (Version 1)
Quarter: 2018Q3

REPORT INFORMATION
  Report Type: Spontaneous
  Country: US (occurrence: US)
  Receive Date: 20180705
  Receipt Date: 20180705
  Transmission Date: 20181010
  Serious: Yes (Other)
  Sender: FDA-Public Use
  Company Number: None

PATIENT
  Age: 79 Year
  Sex: Female
  Weight: 58.97 kg

DRUGS (1)
  1. FLUTICASONE. [Suspect]
     Active Substance: FLUTICASONE
     Indication: RHINITIS
     Route: 045
     Dates: start: 20180303, end: 20180518

REACTIONS (2)
  - Product contamination physical [None]
  - Epistaxis [None]

NARRATIVE: CASE EVENT DATE: 20180603
